FAERS Safety Report 12982600 (Version 1)
Quarter: 2016Q4

REPORT INFORMATION
  Report Type: Spontaneous
  Country: US (occurrence: US)
  Receive Date: 20161129
  Receipt Date: 20161129
  Transmission Date: 20170207
  Serious: No
  Sender: FDA-Public Use
  Company Number: US-GLAXOSMITHKLINE-US2016GSK172470

PATIENT
  Age: 71 Year
  Sex: Male

DRUGS (1)
  1. TANZEUM [Suspect]
     Active Substance: ALBIGLUTIDE
     Indication: TYPE 2 DIABETES MELLITUS
     Dosage: 30 MG, WE
     Route: 042

REACTIONS (9)
  - Device leakage [Unknown]
  - Inability to afford medication [Unknown]
  - Underdose [Unknown]
  - Fall [Unknown]
  - Drug dose omission [Unknown]
  - Blood glucose abnormal [Unknown]
  - Wrong technique in product usage process [Unknown]
  - Limb injury [Unknown]
  - Pain [Unknown]

NARRATIVE: CASE EVENT DATE: 20161107
